FAERS Safety Report 9444452 (Version 2)
Quarter: 2014Q2

REPORT INFORMATION
  Report Type: Spontaneous
  Country: US (occurrence: US)
  Receive Date: 20130807
  Receipt Date: 20140422
  Transmission Date: 20141212
  Serious: No
  Sender: FDA-Public Use
  Company Number: US-009507513-1308USA002626

PATIENT
  Age: 38 Year
  Sex: Female
  Weight: 56.24 kg

DRUGS (14)
  1. VICTRELIS [Suspect]
     Indication: HEPATITIS C
     Dosage: TAKE 800MG (FOUR 200MG CAPSULES) THREE TIMES A DAY, EVERY 8 HOURS, START ON WEEK 5 AS DIRECTED
     Route: 048
     Dates: start: 201308
  2. VICTRELIS [Suspect]
     Dosage: 200 MG, TID
     Route: 048
     Dates: start: 201307, end: 201308
  3. REBETOL [Suspect]
     Dosage: UNK
     Route: 048
  4. PEGASYS [Suspect]
     Dosage: UNK
  5. ADDERALL TABLETS [Concomitant]
     Dosage: UNK
  6. FLAXSEED OIL [Concomitant]
     Dosage: UNK
  7. EVENING PRIMROSE OIL [Concomitant]
     Dosage: UNK
  8. IRON (UNSPECIFIED) (+) MINERALS (UNSPECIFIED) (+) VITAMINS (UNSPECIFIE [Concomitant]
     Dosage: UNK
  9. POTASSIUM (UNSPECIFIED) [Concomitant]
     Dosage: UNK
  10. BIOTIN [Concomitant]
     Dosage: UNK
  11. CITALOPRAM [Concomitant]
     Dosage: UNK
  12. AMBIEN [Concomitant]
     Dosage: UNK
  13. CYCLOSPORINE [Concomitant]
     Dosage: UNK
  14. ONDANSETRON [Concomitant]
     Dosage: UNK

REACTIONS (6)
  - Nausea [Recovering/Resolving]
  - Vomiting [Recovering/Resolving]
  - Dysgeusia [Recovering/Resolving]
  - Fatigue [Recovering/Resolving]
  - Anaemia [Recovering/Resolving]
  - Anaemia [Recovering/Resolving]
